FAERS Safety Report 4554967-1 (Version None)
Quarter: 2004Q4

REPORT INFORMATION
  Report Type: 
  Country: None (occurrence: None)
  Receive Date: 20041222
  Receipt Date: 20041021
  Transmission Date: 20050328
  Serious: Yes (Hospitalization)
  Sender: FDA-Public Use
  Company Number: 209842

PATIENT
  Sex: Female

DRUGS (5)
  1. AVASTIN [Suspect]
     Indication: SMALL INTESTINE CARCINOMA
     Dosage: SEE IMAGE
     Route: 042
     Dates: end: 20040801
  2. AVASTIN [Suspect]
     Indication: SMALL INTESTINE CARCINOMA
     Dosage: SEE IMAGE
     Route: 042
     Dates: start: 20041020
  3. FLUOROURACIL [Concomitant]
  4. LEUCOVORIN CALCIUM [Concomitant]
  5. OXALIPLATIN (OXALIPLATIN) [Concomitant]

REACTIONS (2)
  - GASTROINTESTINAL HAEMORRHAGE [None]
  - PLATELET COUNT DECREASED [None]
